FAERS Safety Report 6283854-6 (Version None)
Quarter: 2009Q3

REPORT INFORMATION
  Report Type: 
  Country: None (occurrence: None)
  Receive Date: 20090725
  Receipt Date: 20090724
  Transmission Date: 20100115
  Serious: Yes (Hospitalization, Other)
  Sender: FDA-Public Use
  Company Number: BR-ABBOTT-08P-020-0458047-00

PATIENT
  Sex: Female
  Weight: 54 kg

DRUGS (8)
  1. HUMIRA [Suspect]
     Indication: RHEUMATOID ARTHRITIS
     Route: 058
     Dates: start: 20060629, end: 20090626
  2. METHOTREXATE [Concomitant]
     Indication: RHEUMATOID ARTHRITIS
     Dosage: 4 TABS IN SEVEN DAYS
     Route: 048
     Dates: end: 20090501
  3. CHLOROQUINE SULFATE, CHONDROITIN SULFATE [Concomitant]
     Indication: RHEUMATOID ARTHRITIS
     Route: 048
     Dates: end: 20090501
  4. TANDRILAX [Concomitant]
     Indication: PAIN
     Route: 048
  5. TYLEX [Concomitant]
     Indication: PAIN
     Dates: start: 20090622
  6. NIMESULIDE, RANITIDINE, PARACETAMOL (MAGISTRAL FORMULA) [Concomitant]
     Indication: DRUG USE FOR UNKNOWN INDICATION
     Dosage: NIMESULIDE 100 MG, RANITIDINE 150 MG, AND PARACETAMOL 500MG IN 12 DAYS
     Route: 048
     Dates: start: 20090623, end: 20090715
  7. ACETYLSALICYLIC ACID [Concomitant]
     Indication: ANGIOPATHY
     Route: 048
     Dates: start: 20090601
  8. SIMVASTATIN [Concomitant]
     Indication: BLOOD CHOLESTEROL INCREASED
     Route: 048
     Dates: start: 20090601

REACTIONS (14)
  - ABDOMINAL PAIN [None]
  - AORTIC ANEURYSM [None]
  - ARTHRALGIA [None]
  - BLOOD URINE PRESENT [None]
  - BONE EROSION [None]
  - GASTROINTESTINAL INFECTION [None]
  - INJECTION SITE NODULE [None]
  - INJECTION SITE PAIN [None]
  - JOINT RANGE OF MOTION DECREASED [None]
  - MOBILITY DECREASED [None]
  - MUSCULOSKELETAL PAIN [None]
  - NEPHROLITHIASIS [None]
  - PAIN IN EXTREMITY [None]
  - URINARY TRACT INFECTION [None]
